FAERS Safety Report 4840491-5 (Version None)
Quarter: 2005Q4

REPORT INFORMATION
  Report Type: 
  Country: None (occurrence: None)
  Receive Date: 20051130
  Receipt Date: 20050817
  Transmission Date: 20060501
  Serious: Yes (Other)
  Sender: FDA-Public Use
  Company Number: US-BRISTOL-MYERS SQUIBB COMPANY-13082326

PATIENT
  Sex: Female

DRUGS (8)
  1. ERBITUX [Suspect]
     Indication: COLON CANCER METASTATIC
     Route: 042
     Dates: start: 20050701, end: 20050701
  2. BENADRYL [Concomitant]
     Indication: PREMEDICATION
     Dates: start: 20050701, end: 20050701
  3. KYTRIL [Concomitant]
     Indication: PREMEDICATION
     Dates: start: 20050701, end: 20050701
  4. DECADRON [Concomitant]
     Indication: PREMEDICATION
     Dates: start: 20050701, end: 20050701
  5. COUMADIN [Concomitant]
  6. TAGAMET [Concomitant]
  7. PERCOCET [Concomitant]
  8. LOPRESSOR [Concomitant]

REACTIONS (4)
  - DRY SKIN [None]
  - NAIL DISCOLOURATION [None]
  - OEDEMA PERIPHERAL [None]
  - RASH [None]
